FAERS Safety Report 5038307-X (Version None)
Quarter: 2006Q2

REPORT INFORMATION
  Report Type: 
  Country: None (occurrence: None)
  Receive Date: 20060629
  Receipt Date: 20060619
  Transmission Date: 20061013
  Serious: Yes (Hospitalization)
  Sender: FDA-Public Use
  Company Number: PHBS2006JP09268

PATIENT
  Age: 70 Year
  Sex: Male

DRUGS (1)
  1. VOLTAREN [Suspect]
     Indication: PROCEDURAL PAIN
     Dosage: 25 MG/DAY
     Route: 054
     Dates: start: 20060610

REACTIONS (1)
  - SHOCK [None]
